FAERS Safety Report 5900427-2 (Version None)
Quarter: 2008Q3

REPORT INFORMATION
  Report Type: 
  Country: None (occurrence: None)
  Receive Date: 20080926
  Receipt Date: 20080918
  Transmission Date: 20090109
  Serious: Yes (Death)
  Sender: FDA-Public Use
  Company Number: US-GENENTECH-268426

PATIENT
  Age: 64 Year
  Sex: Female

DRUGS (5)
  1. RITUXAN [Suspect]
     Indication: DRUG USE FOR UNKNOWN INDICATION
  2. CYCLOSPORINE [Concomitant]
     Indication: IMMUNOSUPPRESSION
  3. PREDNISONE [Concomitant]
     Indication: IMMUNOSUPPRESSION
  4. MYCOPHENOLATE MOFETIL [Concomitant]
     Indication: IMMUNOSUPPRESSION
  5. METHYLPREDNISOLONE [Concomitant]
     Indication: IMMUNOSUPPRESSION

REACTIONS (2)
  - ASPERGILLOSIS [None]
  - CYTOMEGALOVIRUS INFECTION [None]
